FAERS Safety Report 9674707 (Version 1)
Quarter: 2013Q4

REPORT INFORMATION
  Report Type: Report from Study
  Country: CA (occurrence: CA)
  Receive Date: 20131107
  Receipt Date: 20131107
  Transmission Date: 20140711
  Serious: Yes (Other)
  Sender: FDA-Public Use
  Company Number: CA-JNJFOC-20131018934

PATIENT
  Age: 18 Year
  Sex: Male
  Weight: 66.7 kg

DRUGS (2)
  1. REMICADE [Suspect]
     Indication: ANKYLOSING SPONDYLITIS
     Route: 042
     Dates: start: 20120719
  2. REMICADE [Suspect]
     Indication: CROHN^S DISEASE
     Route: 042
     Dates: start: 20120719

REACTIONS (3)
  - Ataxia [Not Recovered/Not Resolved]
  - Oropharyngeal pain [Recovered/Resolved]
  - Pyrexia [Unknown]
